FAERS Safety Report 8267123-0 (Version None)
Quarter: 2012Q2

REPORT INFORMATION
  Report Type: 
  Country: None (occurrence: None)
  Receive Date: 20120404
  Receipt Date: 20120326
  Transmission Date: 20120825
  Serious: Yes (Other)
  Sender: FDA-Public Use
  Company Number: VAL_00722_2012

PATIENT
  Age: 54 Year
  Sex: Female

DRUGS (1)
  1. CARBAMAZEPINE [Suspect]
     Indication: MAJOR DEPRESSION
     Dosage: (250 MG BID)

REACTIONS (9)
  - RASH GENERALISED [None]
  - OCULAR ICTERUS [None]
  - DRUG RASH WITH EOSINOPHILIA AND SYSTEMIC SYMPTOMS [None]
  - ORAL DISORDER [None]
  - PRURITUS GENERALISED [None]
  - BASOPHILIA [None]
  - HYPERBILIRUBINAEMIA [None]
  - PYREXIA [None]
  - ASPARTATE AMINOTRANSFERASE INCREASED [None]
